FAERS Safety Report 11448890 (Version 2)
Quarter: 2015Q3

REPORT INFORMATION
  Report Type: Report from Study
  Country: US (occurrence: US)
  Receive Date: 20150902
  Receipt Date: 20150923
  Transmission Date: 20151125
  Serious: Yes (Death, Hospitalization)
  Sender: FDA-Public Use
  Company Number: US-JNJFOC-20150901005

PATIENT
  Sex: Male

DRUGS (7)
  1. IMBRUVICA [Suspect]
     Active Substance: IBRUTINIB
     Indication: CHRONIC LYMPHOCYTIC LEUKAEMIA
     Route: 048
     Dates: start: 20150429, end: 201508
  2. PROSCAR [Concomitant]
     Active Substance: FINASTERIDE
     Route: 048
  3. COLACE [Concomitant]
     Active Substance: DOCUSATE SODIUM
     Indication: CONSTIPATION
     Route: 048
  4. ANASPAZ [Concomitant]
     Active Substance: HYOSCYAMINE SULFATE
     Indication: MUSCLE SPASMS
  5. GLYCOLAX [Concomitant]
     Active Substance: POLYETHYLENE GLYCOL 3350
     Dosage: POWDER (EXCEPT [DPO])
     Route: 048
  6. TYLENOL [Concomitant]
     Active Substance: ACETAMINOPHEN
     Indication: PAIN
     Route: 048
  7. B+O SUPPRETTES [Concomitant]
     Route: 054

REACTIONS (12)
  - Pneumonia [Unknown]
  - Liver function test abnormal [Unknown]
  - Prostatic mass [Unknown]
  - Adenocarcinoma [Unknown]
  - Haematuria [Unknown]
  - Bacteraemia [Unknown]
  - Death [Fatal]
  - Urinary tract obstruction [Unknown]
  - General physical health deterioration [Unknown]
  - Sepsis [Not Recovered/Not Resolved]
  - Urinary tract infection enterococcal [Unknown]
  - Nodule [Unknown]

NARRATIVE: CASE EVENT DATE: 2015
